FAERS Safety Report 6518069-7 (Version None)
Quarter: 2009Q4

REPORT INFORMATION
  Report Type: 
  Country: None (occurrence: None)
  Receive Date: 20091224
  Receipt Date: 20091222
  Transmission Date: 20100525
  Serious: Yes (Hospitalization)
  Sender: FDA-Public Use
  Company Number: US-GILEAD-2009-0026189

PATIENT
  Sex: Male

DRUGS (12)
  1. LETAIRIS [Suspect]
     Indication: PULMONARY ARTERIAL HYPERTENSION
     Route: 048
  2. SIMVASTATIN [Concomitant]
  3. CARVEDILOL [Concomitant]
  4. GABAPENTIN [Concomitant]
  5. FUROSEMIDE [Concomitant]
  6. TERAZOSIN HCL [Concomitant]
  7. ADVAIR DISKUS 100/50 [Concomitant]
  8. ZETIA [Concomitant]
  9. ALBUTEROL [Concomitant]
  10. OMEPRAZOLE [Concomitant]
  11. NOVOLIN [Concomitant]
  12. IRON [Concomitant]

REACTIONS (2)
  - BRONCHITIS [None]
  - DYSPNOEA [None]
